FAERS Safety Report 19975880 (Version 2)
Quarter: 2021Q4

REPORT INFORMATION
  Report Type: Spontaneous
  Country: US (occurrence: US)
  Receive Date: 20211021
  Receipt Date: 20211021
  Transmission Date: 20220303
  Serious: Yes (Hospitalization)
  Sender: FDA-Public Use
  Company Number: US-MDD US OPERATIONS-SUP202109-001949

PATIENT
  Age: 8 Year

DRUGS (2)
  1. QELBREE [Suspect]
     Active Substance: VILOXAZINE HYDROCHLORIDE
     Indication: Product used for unknown indication
     Dates: start: 202108, end: 20210917
  2. ATIVAN [Suspect]
     Active Substance: LORAZEPAM
     Indication: Agitation
     Dosage: NOT PROVIDED

REACTIONS (6)
  - Tachycardia [Unknown]
  - Abdominal pain [Unknown]
  - Vomiting [Unknown]
  - Dehydration [Unknown]
  - White blood cell count increased [Unknown]
  - Mania [Unknown]

NARRATIVE: CASE EVENT DATE: 20210901
